FAERS Safety Report 8478885-1 (Version None)
Quarter: 2012Q2

REPORT INFORMATION
  Report Type: 
  Country: None (occurrence: None)
  Receive Date: 20120629
  Receipt Date: 20120627
  Transmission Date: 20120825
  Serious: Yes (Other)
  Sender: FDA-Public Use
  Company Number: US-PFIZER INC-2012155627

PATIENT
  Sex: Female
  Weight: 68 kg

DRUGS (2)
  1. ATIVAN [Concomitant]
     Indication: DEPRESSION
     Dosage: 2 MG, 3X/DAY
  2. PRISTIQ [Suspect]
     Indication: DEPRESSION
     Dosage: 100 MG, DAILY
     Dates: start: 20110101

REACTIONS (3)
  - DEPRESSION [None]
  - SURGERY [None]
  - CRYING [None]
